FAERS Safety Report 21089247 (Version 1)
Quarter: 2022Q3

REPORT INFORMATION
  Report Type: Spontaneous
  Country: US (occurrence: None)
  Receive Date: 20220715
  Receipt Date: 20220715
  Transmission Date: 20221026
  Serious: No
  Sender: FDA-Public Use
  Company Number: None

PATIENT
  Age: 57 Year
  Sex: Female

DRUGS (1)
  1. EVEROLIMUS [Suspect]
     Active Substance: EVEROLIMUS
     Dosage: FREQUENCY : DAILY;?
     Route: 048
     Dates: start: 202109

REACTIONS (7)
  - Peripheral swelling [None]
  - Breast swelling [None]
  - Nephrolithiasis [None]
  - Rash [None]
  - Rosacea [None]
  - Acne [None]
  - Metastases to lymph nodes [None]

NARRATIVE: CASE EVENT DATE: 20220714
